FAERS Safety Report 5258962-9 (Version None)
Quarter: 2007Q1

REPORT INFORMATION
  Report Type: 
  Country: None (occurrence: None)
  Receive Date: 20070308
  Receipt Date: 20070228
  Transmission Date: 20070707
  Serious: Yes (Other)
  Sender: FDA-Public Use
  Company Number: CA-ROCHE-485085

PATIENT
  Age: 25 Year
  Sex: Male
  Weight: 73 kg

DRUGS (2)
  1. ACCUTANE [Suspect]
     Indication: DRUG USE FOR UNKNOWN INDICATION
     Route: 065
  2. ACCUTANE [Suspect]
     Route: 065
     Dates: start: 20020615

REACTIONS (5)
  - ALOPECIA [None]
  - DRY SKIN [None]
  - EPISTAXIS [None]
  - HYPERAESTHESIA [None]
  - PHOTOSENSITIVITY REACTION [None]
